FAERS Safety Report 8350187-3 (Version None)
Quarter: 2012Q2

REPORT INFORMATION
  Report Type: 
  Country: None (occurrence: None)
  Receive Date: 20120510
  Receipt Date: 20120508
  Transmission Date: 20120825
  Serious: Yes (Life-Threatening, Hospitalization, Disabling, Other)
  Sender: FDA-Public Use
  Company Number: JP-PFIZER INC-2012061723

PATIENT
  Age: 71 Year
  Sex: Female
  Weight: 44 kg

DRUGS (10)
  1. LYRICA [Suspect]
     Dosage: 75 MG, 2X/DAY
     Route: 048
     Dates: start: 20120306, end: 20120307
  2. JANUVIA [Concomitant]
     Dosage: 50 MG, 1X/DAY
  3. DIOVAN [Concomitant]
     Dosage: 80 MG, 1X/DAY
  4. AMLODIPINE [Concomitant]
     Dosage: 5 MG, 1X/DAY
  5. ROZEREM [Concomitant]
     Dosage: 8 MG, 1X/DAY
  6. LYRICA [Suspect]
     Indication: PAIN
     Dosage: 75 MG, 1X/DAY
     Route: 048
     Dates: start: 20120305, end: 20120305
  7. LYRICA [Suspect]
     Dosage: 75 MG, 1X/DAY
     Route: 048
     Dates: start: 20120308, end: 20120308
  8. GLUCOBAY [Concomitant]
     Dosage: 50 MG, 3X/DAY
  9. AMARYL [Concomitant]
     Dosage: 1 MG, 1X/DAY
  10. LANSOPRAZOLE [Concomitant]
     Dosage: 30 MG, 1X/DAY

REACTIONS (1)
  - HYPOGLYCAEMIA [None]
